FAERS Safety Report 7336215 (Version 6)
Quarter: 2013Q2

REPORT INFORMATION
  Report Type: Spontaneous
  Country: US (occurrence: US)
  Receive Date: 20100330
  Receipt Date: 20130417
  Transmission Date: 20140414
  Serious: Yes (Hospitalization)
  Sender: FDA-Public Use
  Company Number: US-BAYER-201017772NA

PATIENT
  Age: 20 Year
  Sex: Female
  Weight: 79.55 kg

DRUGS (4)
  1. YAZ [Suspect]
     Indication: CONTRACEPTION
     Dosage: AS USED DOSE: UNK
     Route: 048
     Dates: start: 20080219, end: 20091025
  2. YASMIN [Suspect]
  3. VICODIN [Concomitant]
     Indication: NON-CARDIAC CHEST PAIN
     Dosage: 15 TABLETS 1-2 TABLETS BY MOUTH EVERY 4-6 HOURS AS NEEDED FOR PAIN
     Route: 048
     Dates: start: 200910
  4. TYLENOL [Concomitant]
     Indication: MUSCULOSKELETAL PAIN
     Dates: start: 20091024

REACTIONS (6)
  - Pulmonary embolism [None]
  - Chest pain [None]
  - Dyspnoea [None]
  - Sinus tachycardia [None]
  - Anxiety [None]
  - Amenorrhoea [None]
